FAERS Safety Report 9467273 (Version 1)
Quarter: 2013Q3

REPORT INFORMATION
  Report Type: Spontaneous
  Country: US (occurrence: US)
  Receive Date: 20130821
  Receipt Date: 20130821
  Transmission Date: 20140515
  Serious: No
  Sender: FDA-Public Use
  Company Number: US-BIOGENIDEC-2013BI077210

PATIENT
  Sex: Female

DRUGS (1)
  1. AVONEX [Suspect]
     Indication: MULTIPLE SCLEROSIS
     Route: 030
     Dates: start: 20070101

REACTIONS (11)
  - Fall [Recovered/Resolved]
  - Psoriatic arthropathy [Unknown]
  - Temperature intolerance [Unknown]
  - Arthropathy [Unknown]
  - Fibromyalgia [Unknown]
  - Multiple sclerosis relapse [Unknown]
  - General physical health deterioration [Unknown]
  - Gait disturbance [Unknown]
  - Asthenia [Unknown]
  - Muscle spasticity [Unknown]
  - Dizziness [Unknown]
